FAERS Safety Report 20379980 (Version 1)
Quarter: 2022Q1

REPORT INFORMATION
  Report Type: Spontaneous
  Country: ES (occurrence: ES)
  Receive Date: 20220126
  Receipt Date: 20220126
  Transmission Date: 20220423
  Serious: Yes (Hospitalization)
  Sender: FDA-Public Use
  Company Number: None

PATIENT
  Age: 64 Year
  Sex: Male

DRUGS (1)
  1. NEXAVAR [Suspect]
     Active Substance: SORAFENIB
     Dosage: 200 MG, BID
     Route: 048
     Dates: start: 20210729, end: 20210806

REACTIONS (6)
  - Disorientation [Recovered/Resolved]
  - General physical health deterioration [Recovered/Resolved]
  - Nervous system disorder [Recovered/Resolved]
  - Bradyphrenia [Recovered/Resolved]
  - Bedridden [Recovered/Resolved]
  - Decreased appetite [Recovered/Resolved]

NARRATIVE: CASE EVENT DATE: 20210806
